FAERS Safety Report 9846511 (Version 3)
Quarter: 2014Q1

REPORT INFORMATION
  Report Type: Spontaneous
  Country: IT (occurrence: None)
  Receive Date: 20140117
  Receipt Date: 20140124
  Transmission Date: 20141002
  Serious: Yes (Hospitalization)
  Sender: FDA-Public Use
  Company Number: AUR-APL-2014-00332

PATIENT
  Age: 77 Year
  Sex: Male

DRUGS (7)
  1. MIRTAZAPINE [Suspect]
     Indication: PRODUCT USED FOR UNKNOWN INDICATION
     Dosage: 1 DOSAGE FORMS, 1 D, ORAL
     Route: 048
     Dates: start: 20130801, end: 20130903
  2. MIRAPEXIN [Suspect]
     Indication: PRODUCT USED FOR UNKNOWN INDICATION
     Dosage: 2 DOSAGE FORMS, 1 D, ORAL
     Route: 048
     Dates: start: 20130801, end: 20130903
  3. PIRACETAM (PIRACETAM) [Concomitant]
  4. BENAZEPRIL (BENAZEPRIL) [Concomitant]
  5. LORAZEPAM (LORAZEPAM) [Concomitant]
  6. TAMSULOSIN CHLORHYDRATE (TAMSULOSIN) [Concomitant]
  7. METFORMIN (METFORMIN) [Concomitant]

REACTIONS (3)
  - Confusional state [None]
  - Dysarthria [None]
  - Hallucination [None]
